FAERS Safety Report 25213714 (Version 1)
Quarter: 2025Q2

REPORT INFORMATION
  Report Type: Spontaneous
  Country: US (occurrence: None)
  Receive Date: 20250417
  Receipt Date: 20250417
  Transmission Date: 20250716
  Serious: Yes (Hospitalization)
  Sender: FDA-CTU
  Company Number: None

PATIENT
  Age: 73 Year
  Sex: Male
  Weight: 82 kg

DRUGS (1)
  1. TIZANIDINE HYDROCHLORIDE [Suspect]
     Active Substance: TIZANIDINE HYDROCHLORIDE
     Indication: Pain
     Route: 048
     Dates: start: 20240801, end: 20240801

REACTIONS (4)
  - Sedation [None]
  - Hypotension [None]
  - Adverse drug reaction [None]
  - Incorrect dose administered [None]

NARRATIVE: CASE EVENT DATE: 20240801
